FAERS Safety Report 16798103 (Version 1)
Quarter: 2019Q4

REPORT INFORMATION
  Report Type: Spontaneous
  Country: US (occurrence: US)
  Receive Date: 20190911
  Receipt Date: 20190911
  Transmission Date: 20200122
  Serious: Yes (Hospitalization)
  Sender: FDA-Public Use
  Company Number: None

PATIENT
  Age: 11 Year
  Sex: Female

DRUGS (13)
  1. SINGULAIRE [Concomitant]
  2. TRIAMCINOLONE [Concomitant]
     Active Substance: TRIAMCINOLONE
  3. PERMETHRIN. [Concomitant]
     Active Substance: PERMETHRIN
  4. IPRATROPIUM [Concomitant]
     Active Substance: IPRATROPIUM
  5. VALERATE [Concomitant]
  6. TADALAFIL. [Suspect]
     Active Substance: TADALAFIL
     Indication: PULMONARY HYPERTENSION
     Route: 048
     Dates: start: 20181022
  7. FLUTICASONE. [Concomitant]
     Active Substance: FLUTICASONE
  8. MONTELUKAST [Concomitant]
     Active Substance: MONTELUKAST SODIUM
  9. MULTI VITAMIN [Concomitant]
     Active Substance: VITAMINS
  10. NASONEX [Concomitant]
     Active Substance: MOMETASONE FUROATE
  11. RANITIDINE. [Concomitant]
     Active Substance: RANITIDINE
  12. CIPROFLOXACIN. [Concomitant]
     Active Substance: CIPROFLOXACIN
  13. XOPENEX [Concomitant]
     Active Substance: LEVALBUTEROL HYDROCHLORIDE

REACTIONS (1)
  - Tracheal resection [None]

NARRATIVE: CASE EVENT DATE: 20190905
